FAERS Safety Report 7353848-8 (Version None)
Quarter: 2011Q1

REPORT INFORMATION
  Report Type: 
  Country: None (occurrence: None)
  Receive Date: 20110315
  Receipt Date: 20110311
  Transmission Date: 20110831
  Serious: Yes (Death, Other)
  Sender: FDA-Public Use
  Company Number: JP-PFIZER INC-2010167451

PATIENT
  Age: 83 Year
  Sex: Female
  Weight: 39 kg

DRUGS (13)
  1. HEPARIN SODIUM [Concomitant]
     Dosage: 5000 DF, 1X/DAY
     Route: 041
     Dates: start: 20101201, end: 20101203
  2. WARFARIN [Concomitant]
     Indication: DEEP VEIN THROMBOSIS
     Dosage: 3 MG, 1X/DAY
     Route: 048
     Dates: start: 20101201, end: 20101202
  3. WARFARIN [Concomitant]
     Indication: ATRIAL FIBRILLATION
     Dosage: 2 MG, 1X/DAY
     Route: 048
     Dates: start: 20101203, end: 20101204
  4. SAXIZON [Concomitant]
     Indication: RHEUMATOID ARTHRITIS
     Dosage: 200 MG, 1X/DAY
     Route: 042
     Dates: start: 20101202, end: 20101202
  5. SAXIZON [Concomitant]
     Indication: STRESS
     Dosage: 300 MG, 1X/DAY
     Route: 042
     Dates: start: 20101130, end: 20101201
  6. PREDONINE [Concomitant]
     Dosage: 20 MG, 1X/DAY
     Route: 042
     Dates: start: 20101206, end: 20101214
  7. RHEUMATREX [Suspect]
     Indication: RHEUMATOID ARTHRITIS
     Dosage: 6 MG, WEEKLY
     Route: 048
     Dates: end: 20101207
  8. LIPITOR [Suspect]
     Indication: HYPERLIPIDAEMIA
     Dosage: 5 MG, 1X/DAY
     Route: 048
     Dates: end: 20101207
  9. TAKEPRON [Suspect]
     Dosage: 15 MG, 1X/DAY
     Route: 048
     Dates: end: 20101207
  10. HEPARIN SODIUM [Concomitant]
     Indication: DEEP VEIN THROMBOSIS
     Dosage: 5000 DF, 2X/DAY
     Route: 041
     Dates: start: 20101130, end: 20101130
  11. SAXIZON [Concomitant]
     Dosage: 100 MG, 1X/DAY
     Route: 042
     Dates: start: 20101203, end: 20101203
  12. WARFARIN [Concomitant]
     Dosage: 1 MG, 1X/DAY
     Route: 048
     Dates: start: 20101205, end: 20101207
  13. PREDNISOLONE [Concomitant]
     Indication: RHEUMATOID ARTHRITIS
     Dosage: 7.5 MG, 1X/DAY
     Route: 048
     Dates: end: 20101205

REACTIONS (16)
  - RENAL FAILURE [None]
  - HAEMORRHAGE [None]
  - ATRIAL FIBRILLATION [None]
  - BONE MARROW FAILURE [None]
  - COLON NEOPLASM [None]
  - OESOPHAGEAL CANDIDIASIS [None]
  - TOXICITY TO VARIOUS AGENTS [None]
  - PANCYTOPENIA [None]
  - CONVULSION [None]
  - DISSEMINATED INTRAVASCULAR COAGULATION [None]
  - BLOOD GLUCOSE INCREASED [None]
  - TACHYCARDIA [None]
  - MULTI-ORGAN FAILURE [None]
  - SEPSIS [None]
  - DRUG EFFECT INCREASED [None]
  - CLOSTRIDIUM TEST POSITIVE [None]
